FAERS Safety Report 5373673-7 (Version None)
Quarter: 2007Q2

REPORT INFORMATION
  Report Type: 
  Country: None (occurrence: None)
  Receive Date: 20070615
  Receipt Date: 20050328
  Transmission Date: 20071010
  Serious: Yes (Other)
  Sender: FDA-Public Use
  Company Number: 200512497US

PATIENT
  Age: 33 Year
  Sex: Male

DRUGS (7)
  1. LANTUS [Suspect]
     Indication: DIABETES MELLITUS INSULIN-DEPENDENT
     Dosage: 17 U HS
  2. LANTUS [Suspect]
     Indication: DIABETES MELLITUS INSULIN-DEPENDENT
     Dosage: 26 U QAM
  3. SYNTHROID [Concomitant]
  4. ZOCOR [Concomitant]
  5. OTHR MEDICATIONS NOS [Concomitant]
  6. INSULIN (HUMALOG /00030501/) [Concomitant]
  7. COZAAR [Concomitant]

REACTIONS (3)
  - HYPOGLYCAEMIA [None]
  - HYPOGLYCAEMIC COMA [None]
  - WEIGHT INCREASED [None]
